FAERS Safety Report 7262241-8 (Version None)
Quarter: 2011Q1

REPORT INFORMATION
  Report Type: 
  Country: None (occurrence: None)
  Receive Date: 20110130
  Receipt Date: 20101124
  Transmission Date: 20110831
  Serious: No
  Sender: FDA-Public Use
  Company Number: US-ABBOTT-10P-163-0687702-00

PATIENT
  Sex: Female
  Weight: 56.75 kg

DRUGS (47)
  1. COFFEE [Concomitant]
     Indication: PRODUCT USED FOR UNKNOWN INDICATION
     Dosage: 2.5 SERVING DAILY
     Route: 048
     Dates: start: 20081015, end: 20081119
  2. LIQUOR (RUM) [Concomitant]
     Indication: PRODUCT USED FOR UNKNOWN INDICATION
     Dosage: 1.5 SERVING
     Route: 048
     Dates: start: 20081015, end: 20081114
  3. DHA [Concomitant]
     Indication: PRODUCT USED FOR UNKNOWN INDICATION
     Dosage: PILL
     Route: 048
     Dates: start: 20090210, end: 20090714
  4. CAFFEINE [Concomitant]
     Indication: PRODUCT USED FOR UNKNOWN INDICATION
     Dosage: COFFEE, TEA OR DIET 1 SERVING 3.5 A WEEK
     Route: 048
     Dates: start: 20081210, end: 20090602
  5. WINE [Concomitant]
     Dosage: SERVING
     Route: 048
     Dates: start: 20090128, end: 20090128
  6. WINE [Concomitant]
     Dosage: 1 SERVING
     Route: 048
     Dates: start: 20090320, end: 20090321
  7. WINE [Concomitant]
     Dosage: 1 SERVING
     Route: 048
     Dates: start: 20090416, end: 20090416
  8. WINE [Concomitant]
     Dosage: 1 SERVING
     Route: 048
     Dates: start: 20090423, end: 20090423
  9. WINE [Concomitant]
     Dosage: 1 SERVING
     Route: 048
     Dates: start: 20090509, end: 20090509
  10. WINE [Concomitant]
     Dosage: 1 SERVING
     Route: 048
     Dates: start: 20090519, end: 20090519
  11. WINE [Concomitant]
     Dosage: 1 GLASS
     Route: 048
     Dates: start: 20090602, end: 20090714
  12. TUMS [Concomitant]
     Dosage: PILL
     Route: 048
     Dates: start: 20090125, end: 20090125
  13. TUMS [Concomitant]
     Dosage: PILL
     Route: 048
     Dates: start: 20090430, end: 20090430
  14. TUMS [Concomitant]
     Dosage: PILL
     Route: 048
     Dates: start: 20090608, end: 20090608
  15. MULTI-VITAMINS [Concomitant]
     Indication: PRODUCT USED FOR UNKNOWN INDICATION
     Dosage: PILL
     Route: 048
     Dates: start: 20081121, end: 20090714
  16. LIQUOR (RUM) [Concomitant]
     Dosage: SERVINGS
     Route: 048
     Dates: start: 20081114, end: 20081114
  17. WINE [Concomitant]
     Indication: PRODUCT USED FOR UNKNOWN INDICATION
     Dosage: 1/4 GLASS .25 SERVING
     Route: 048
     Dates: start: 20081227, end: 20081227
  18. WINE [Concomitant]
     Dosage: 1 SERVING
     Route: 048
     Dates: start: 20090207, end: 20090207
  19. WINE [Concomitant]
     Dosage: 1 SERVING
     Route: 048
     Dates: start: 20090429, end: 20090429
  20. WINE [Concomitant]
     Dosage: 1 SERVING
     Route: 048
     Dates: start: 20090512, end: 20090513
  21. TUMS [Concomitant]
     Dosage: PILL
     Route: 048
     Dates: start: 20090427, end: 20090427
  22. TUMS [Concomitant]
     Dosage: PILL
     Route: 048
     Dates: start: 20090601, end: 20090601
  23. TYLENOL-500 [Concomitant]
     Dosage: PILL
     Route: 048
     Dates: start: 20090701, end: 20090701
  24. TUMS [Concomitant]
     Dosage: PILL
     Route: 048
     Dates: start: 20090118, end: 20090118
  25. TUMS [Concomitant]
     Dosage: PILL
     Route: 048
     Dates: start: 20090128, end: 20090128
  26. TYLENOL-500 [Concomitant]
     Indication: HEADACHE
     Dosage: PILL
     Route: 048
     Dates: start: 20090107, end: 20090107
  27. CAFFEINE [Concomitant]
     Dosage: 1 SERVING
     Route: 048
     Dates: start: 20090603, end: 20090714
  28. WINE [Concomitant]
     Dosage: 1 SERVING
     Route: 048
     Dates: start: 20090403, end: 20090404
  29. WINE [Concomitant]
     Dosage: 1 SERVING
     Route: 048
     Dates: start: 20090425, end: 20090425
  30. TYLENOL-500 [Concomitant]
     Indication: BACK PAIN
     Dosage: PILL
     Route: 048
     Dates: start: 20090317, end: 20090317
  31. HUMIRA [Suspect]
     Indication: PSORIASIS
     Dates: start: 20081125, end: 20090714
  32. WINE [Concomitant]
     Dosage: 1 SERVING
     Route: 048
     Dates: start: 20090325, end: 20090325
  33. WINE [Concomitant]
     Dosage: 1 SERVING
     Route: 048
     Dates: start: 20090411, end: 20090411
  34. TUMS [Concomitant]
     Dosage: PILL
     Route: 048
     Dates: start: 20090221, end: 20090221
  35. TUMS [Concomitant]
     Dosage: PILL
     Route: 048
     Dates: start: 20090227, end: 20090227
  36. TUMS [Concomitant]
     Dosage: PILL
     Route: 048
     Dates: start: 20090629, end: 20090629
  37. GAS-X [Concomitant]
     Indication: PRODUCT USED FOR UNKNOWN INDICATION
     Dosage: PILL
     Route: 048
     Dates: start: 20090130, end: 20090130
  38. TYLENOL-500 [Concomitant]
     Dosage: PILL
     Route: 048
     Dates: start: 20090619, end: 20090619
  39. TUMS [Concomitant]
     Dosage: PILL
     Route: 048
     Dates: start: 20090111, end: 20090111
  40. GAS-X [Concomitant]
     Dosage: PILL
     Route: 048
     Dates: start: 20090216, end: 20090216
  41. WINE [Concomitant]
     Dosage: 1 SERVING
     Route: 048
     Dates: start: 20081231, end: 20081231
  42. TUMS [Concomitant]
     Indication: DYSPEPSIA
     Dosage: PILL
     Route: 048
     Dates: start: 20090110, end: 20090110
  43. GAS-X [Concomitant]
     Dosage: PILL
     Route: 048
     Dates: start: 20090207, end: 20090207
  44. TYLENOL-500 [Concomitant]
     Dosage: PILL
     Route: 048
     Dates: start: 20090714, end: 20090714
  45. PRENATAL VITAMINS [Concomitant]
     Indication: PRODUCT USED FOR UNKNOWN INDICATION
     Dosage: PILL
     Route: 048
     Dates: start: 20081121, end: 20090714
  46. WINE [Concomitant]
     Dosage: 1 SERVING
     Route: 048
     Dates: start: 20090523, end: 20090523
  47. TUMS [Concomitant]
     Dosage: PILL
     Route: 048
     Dates: start: 20090611, end: 20090611

REACTIONS (4)
  - RESPIRATORY TRACT INFECTION [None]
  - ABDOMINAL DISCOMFORT [None]
  - VOMITING [None]
  - GASTROENTERITIS VIRAL [None]
